FAERS Safety Report 8044696-4 (Version None)
Quarter: 2012Q1

REPORT INFORMATION
  Report Type: 
  Country: None (occurrence: None)
  Receive Date: 20120113
  Receipt Date: 20120112
  Transmission Date: 20120608
  Serious: Yes (Other)
  Sender: FDA-Public Use
  Company Number: US-JNJFOC-2009024235

PATIENT
  Sex: Female

DRUGS (3)
  1. ANTIHYPERTENSIVES [Concomitant]
     Indication: HYPERTENSION
     Dosage: DAILY DOSE TEXT: UNKNOWN
     Route: 065
  2. SUDAFED 24 HOUR [Suspect]
     Route: 048
  3. SUDAFED 24 HOUR [Suspect]
     Indication: NASOPHARYNGITIS
     Dosage: DAILY DOSE TEXT: UNSPECIFIED
     Route: 048
     Dates: start: 20081201

REACTIONS (4)
  - ACTIVITIES OF DAILY LIVING IMPAIRED [None]
  - WHEELCHAIR USER [None]
  - CEREBROVASCULAR ACCIDENT [None]
  - INCONTINENCE [None]
